FAERS Safety Report 5880476-3 (Version None)
Quarter: 2008Q3

REPORT INFORMATION
  Report Type: 
  Country: None (occurrence: None)
  Receive Date: 20080912
  Receipt Date: 20080701
  Transmission Date: 20090109
  Serious: No
  Sender: FDA-Public Use
  Company Number: US-ABBOTT-08P-163-0453558-00

PATIENT
  Sex: Male
  Weight: 73.548 kg

DRUGS (7)
  1. HUMIRA [Suspect]
     Indication: COLITIS ULCERATIVE
     Route: 058
     Dates: start: 20080201
  2. HUMIRA [Suspect]
     Route: 058
  3. FLUOXETINE [Concomitant]
     Indication: ANXIETY
     Route: 048
  4. FLUOXETINE [Concomitant]
     Indication: PANIC DISORDER
  5. VENLAFAXINE HCL [Concomitant]
     Indication: ANXIETY
     Route: 048
  6. VENLAFAXINE HCL [Concomitant]
     Indication: PANIC DISORDER
  7. ACETYLSALICYLIC ACID SRT [Concomitant]
     Indication: DRUG USE FOR UNKNOWN INDICATION

REACTIONS (19)
  - DIZZINESS [None]
  - DRUG INEFFECTIVE [None]
  - DYSPHAGIA [None]
  - DYSPNOEA [None]
  - FATIGUE [None]
  - FLUSHING [None]
  - HOT FLUSH [None]
  - HYPOAESTHESIA [None]
  - INJECTION SITE HAEMATOMA [None]
  - MUSCULAR WEAKNESS [None]
  - NERVOUSNESS [None]
  - PARAESTHESIA [None]
  - PIGMENTATION DISORDER [None]
  - PRURITUS [None]
  - RASH PRURITIC [None]
  - SKIN DEPIGMENTATION [None]
  - SKIN IRRITATION [None]
  - TREMOR [None]
  - VISUAL IMPAIRMENT [None]
